FAERS Safety Report 5749075-8 (Version None)
Quarter: 2008Q2

REPORT INFORMATION
  Report Type: 
  Country: None (occurrence: None)
  Receive Date: 20080521
  Receipt Date: 20080521
  Transmission Date: 20081010
  Serious: No
  Sender: FDA-Public Use
  Company Number: None

PATIENT
  Sex: Female

DRUGS (2)
  1. POTASSIUM CHLORIDE [Suspect]
     Dosage: LIQUID
  2. PHENOBARBITAL ELIXIR [Suspect]
     Dosage: LIQUID

REACTIONS (5)
  - DRUG DISPENSING ERROR [None]
  - DRUG LEVEL INCREASED [None]
  - MEDICATION ERROR [None]
  - VOMITING [None]
  - WRONG DRUG ADMINISTERED [None]
